FAERS Safety Report 7861435-8 (Version None)
Quarter: 2011Q4

REPORT INFORMATION
  Report Type: 
  Country: None (occurrence: None)
  Receive Date: 20111027
  Receipt Date: 20111026
  Transmission Date: 20120403
  Serious: Yes (Life-Threatening, Hospitalization, Other)
  Sender: FDA-Public Use
  Company Number: SE-PFIZER INC-2011260384

PATIENT
  Age: 80 Year
  Sex: Male

DRUGS (11)
  1. WARFARIN SODIUM [Concomitant]
     Dosage: UNK
  2. SPIRONOLACTONE [Concomitant]
     Dosage: UNK
  3. DIGOXIN [Concomitant]
     Dosage: UNK
  4. FUROSEMIDE [Concomitant]
     Dosage: UNK
  5. AMITRIPTYLINE HCL [Suspect]
     Indication: ABDOMINAL PAIN
     Dosage: 10 MG DAILY
     Route: 048
     Dates: start: 20110701, end: 20110921
  6. XALCOM [Concomitant]
     Dosage: UNK
  7. METOPROLOL SUCCINATE [Concomitant]
     Dosage: UNK
  8. HUMALOG [Concomitant]
     Dosage: UNK
  9. RAMIPRIL [Concomitant]
     Dosage: UNK
  10. LYRICA [Suspect]
     Indication: ABDOMINAL PAIN
     Dosage: 25 MG DAILY
     Route: 048
     Dates: start: 20110701, end: 20110921
  11. NOVOLOG MIX 70/30 [Concomitant]
     Dosage: UNK

REACTIONS (3)
  - CARDIAC FAILURE [None]
  - VENTRICULAR TACHYCARDIA [None]
  - CARDIAC ARREST [None]
